FAERS Safety Report 6809732-9 (Version None)
Quarter: 2010Q2

REPORT INFORMATION
  Report Type: 
  Country: None (occurrence: None)
  Receive Date: 20100630
  Receipt Date: 20100621
  Transmission Date: 20101027
  Serious: Yes (Other)
  Sender: FDA-Public Use
  Company Number: US-WYE-H15783010

PATIENT
  Age: 19 Year
  Sex: Male

DRUGS (5)
  1. EFFEXOR XR [Suspect]
     Dates: start: 20080101, end: 20100101
  2. ARIPIPRAZOLE [Suspect]
     Dosage: 20 MG
  3. RESTORIL [Concomitant]
     Indication: INSOMNIA
     Dosage: UNKNOWN
  4. ALCOHOL [Suspect]
     Dosage: UNKNOWN
  5. MARIJUANA [Suspect]
     Dosage: UNKNOWN

REACTIONS (4)
  - DELUSION [None]
  - DRUG WITHDRAWAL SYNDROME [None]
  - HOMICIDAL IDEATION [None]
  - MANIA [None]
